FAERS Safety Report 16588775 (Version 2)
Quarter: 2019Q4

REPORT INFORMATION
  Report Type: Spontaneous
  Country: CO (occurrence: CO)
  Receive Date: 20190718
  Receipt Date: 20191016
  Transmission Date: 20200122
  Serious: Yes (Other)
  Sender: FDA-Public Use
  Company Number: CO-AMGEN-COLSP2019113631

PATIENT
  Age: 52 Year
  Sex: Female

DRUGS (1)
  1. ENBREL [Suspect]
     Active Substance: ETANERCEPT
     Indication: RHEUMATOID ARTHRITIS
     Dosage: 50 MG, CYCLIC (EVERY 8 DAYS)
     Route: 058
     Dates: start: 201904, end: 20190705

REACTIONS (2)
  - Vein disorder [Unknown]
  - Product use issue [Unknown]

NARRATIVE: CASE EVENT DATE: 201904
